FAERS Safety Report 11490184 (Version 2)
Quarter: 2015Q3

REPORT INFORMATION
  Report Type: Report from Study
  Country: US (occurrence: US)
  Receive Date: 20150910
  Receipt Date: 20150929
  Transmission Date: 20151125
  Serious: Yes (Hospitalization, Other)
  Sender: FDA-Public Use
  Company Number: US-GILEAD-2015-0171353

PATIENT
  Age: 72 Year
  Sex: Female

DRUGS (3)
  1. ADEMPAS [Concomitant]
     Active Substance: RIOCIGUAT
  2. COUMADIN [Concomitant]
     Active Substance: WARFARIN SODIUM
  3. AMBRISENTAN [Suspect]
     Active Substance: AMBRISENTAN
     Indication: PRODUCT USED FOR UNKNOWN INDICATION
     Dosage: 5 MG, QD
     Route: 065
     Dates: start: 20150730

REACTIONS (18)
  - Chronic obstructive pulmonary disease [Unknown]
  - Dizziness [Unknown]
  - Anxiety [Unknown]
  - Diarrhoea [Unknown]
  - Renal impairment [Not Recovered/Not Resolved]
  - Throat irritation [Unknown]
  - Oropharyngeal pain [Unknown]
  - Cough [Not Recovered/Not Resolved]
  - Weight decreased [Unknown]
  - Hypotension [Unknown]
  - Chest pain [Unknown]
  - Muscle spasms [Unknown]
  - Upper-airway cough syndrome [Not Recovered/Not Resolved]
  - Anaemia [Unknown]
  - Cardiac failure congestive [Unknown]
  - Oedema [Unknown]
  - Renal failure [Unknown]
  - Epistaxis [Not Recovered/Not Resolved]
